FAERS Safety Report 17861430 (Version 1)
Quarter: 2020Q2

REPORT INFORMATION
  Report Type: Spontaneous
  Country: IE (occurrence: IE)
  Receive Date: 20200604
  Receipt Date: 20200604
  Transmission Date: 20200714
  Serious: Yes (Other)
  Sender: FDA-Public Use
  Company Number: IE-FERRINGPH-2020FE03542

PATIENT
  Age: 62 Year
  Sex: Male

DRUGS (2)
  1. SOMATROPIN. [Suspect]
     Active Substance: SOMATROPIN
     Indication: LIBIDO DISORDER
  2. SOMATROPIN. [Suspect]
     Active Substance: SOMATROPIN
     Indication: MUSCLE BUILDING THERAPY
     Dosage: UNK
     Route: 065

REACTIONS (4)
  - Prescription drug used without a prescription [Unknown]
  - Hyperglycaemic hyperosmolar nonketotic syndrome [Unknown]
  - Product use in unapproved indication [Unknown]
  - Drug abuse [Unknown]
